FAERS Safety Report 8476478-3 (Version None)
Quarter: 2012Q2

REPORT INFORMATION
  Report Type: 
  Country: None (occurrence: None)
  Receive Date: 20120628
  Receipt Date: 20120618
  Transmission Date: 20120825
  Serious: Yes (Other)
  Sender: FDA-Public Use
  Company Number: US-MILLENNIUM PHARMACEUTICALS, INC.-2012-04363

PATIENT
  Age: 28 Year
  Sex: Female

DRUGS (1)
  1. VELCADE [Suspect]
     Indication: TRANSPLANT REJECTION
     Dosage: 1.3 MG/M2, 2/WEEK
     Route: 042

REACTIONS (3)
  - LIVER FUNCTION TEST ABNORMAL [None]
  - VANISHING BILE DUCT SYNDROME [None]
  - FATIGUE [None]
